FAERS Safety Report 14578647 (Version 1)
Quarter: 2018Q1

REPORT INFORMATION
  Report Type: Spontaneous
  Country: US (occurrence: US)
  Receive Date: 20180227
  Receipt Date: 20180227
  Transmission Date: 20180509
  Serious: Yes (Disabling)
  Sender: FDA-Public Use
  Company Number: None

PATIENT
  Age: 59 Year
  Sex: Male
  Weight: 110.25 kg

DRUGS (1)
  1. MODAFINIL TABS 100MG [Suspect]
     Active Substance: MODAFINIL
     Indication: PRODUCT USED FOR UNKNOWN INDICATION
     Dosage: ?          QUANTITY:120 TABLET(S);?
     Route: 048
     Dates: start: 20171201, end: 20180102

REACTIONS (1)
  - Product quality issue [None]

NARRATIVE: CASE EVENT DATE: 20171220
